FAERS Safety Report 8433130-8 (Version None)
Quarter: 2012Q2

REPORT INFORMATION
  Report Type: 
  Country: None (occurrence: None)
  Receive Date: 20120323
  Receipt Date: 20110531
  Transmission Date: 20120825
  Serious: Yes (Other)
  Sender: FDA-Public Use
  Company Number: 163-21880-11060415

PATIENT
  Age: 79 Year
  Sex: Female

DRUGS (10)
  1. MULTIVITAMIN [Concomitant]
  2. COUMADIN [Concomitant]
  3. POTASSIUM CHLORIDE [Concomitant]
  4. GLUCOSAMINE (GLUCOSAMINE) ( [Concomitant]
  5. REVLIMID [Suspect]
     Indication: MULTIPLE MYELOMA
     Dosage: 25 MG, 1 IN 1 D, PO; 10 MG, 1 IN 1 D, PO
     Route: 048
     Dates: start: 20100801
  6. REVLIMID [Suspect]
     Indication: MULTIPLE MYELOMA
     Dosage: 25 MG, 1 IN 1 D, PO; 10 MG, 1 IN 1 D, PO
     Route: 048
     Dates: start: 20080918
  7. ASCORBIC ACID [Concomitant]
  8. DECADRON [Concomitant]
  9. VALTREX [Concomitant]
  10. BACTRIM [Concomitant]

REACTIONS (1)
  - RED BLOOD CELL COUNT DECREASED [None]
